FAERS Safety Report 9018755 (Version 4)
Quarter: 2015Q4

REPORT INFORMATION
  Report Type: Report from Study
  Country: US (occurrence: US)
  Receive Date: 20130118
  Receipt Date: 20151015
  Transmission Date: 20160305
  Serious: Yes (Hospitalization, Other)
  Sender: FDA-Public Use
  Company Number: US-SANOFI-AVENTIS-2013SA001393

PATIENT
  Age: 45 Year
  Sex: Female

DRUGS (2)
  1. AUBAGIO [Suspect]
     Active Substance: TERIFLUNOMIDE
     Indication: MULTIPLE SCLEROSIS
     Route: 048
  2. AUBAGIO [Suspect]
     Active Substance: TERIFLUNOMIDE
     Indication: MULTIPLE SCLEROSIS
     Route: 048
     Dates: start: 20121128, end: 201212

REACTIONS (17)
  - Appendicitis [Recovered/Resolved]
  - Mobility decreased [Not Recovered/Not Resolved]
  - Influenza [Unknown]
  - Malaise [Unknown]
  - Mouth swelling [Not Recovered/Not Resolved]
  - Diarrhoea [Unknown]
  - Pain in jaw [Recovering/Resolving]
  - Seizure [Unknown]
  - Hallucination, visual [Unknown]
  - Asthenia [Not Recovered/Not Resolved]
  - Hallucination, auditory [Unknown]
  - Tooth disorder [Not Recovered/Not Resolved]
  - Fall [Not Recovered/Not Resolved]
  - Multiple sclerosis relapse [Not Recovered/Not Resolved]
  - Speech disorder [Recovered/Resolved]
  - Loss of consciousness [Unknown]
  - Peroneal nerve palsy [Recovered/Resolved]

NARRATIVE: CASE EVENT DATE: 201212
